FAERS Safety Report 23738011 (Version 1)
Quarter: 2024Q2

REPORT INFORMATION
  Report Type: Spontaneous
  Country: US (occurrence: None)
  Receive Date: 20240412
  Receipt Date: 20240412
  Transmission Date: 20240716
  Serious: Yes (Hospitalization)
  Sender: FDA-Public Use
  Company Number: None

PATIENT
  Sex: Male

DRUGS (3)
  1. DROXIDOPA [Suspect]
     Active Substance: DROXIDOPA
     Indication: Autonomic neuropathy
     Dosage: 400 MG BID ORAL
     Route: 048
     Dates: start: 202402
  2. DROXIDOPA [Suspect]
     Active Substance: DROXIDOPA
     Indication: Orthostatic hypotension
  3. DROXIDOPA [Suspect]
     Active Substance: DROXIDOPA
     Indication: Syncope

REACTIONS (4)
  - Orthostatic hypotension [None]
  - Loss of consciousness [None]
  - Syncope [None]
  - Fall [None]
